FAERS Safety Report 7480357-8 (Version None)
Quarter: 2011Q2

REPORT INFORMATION
  Report Type: 
  Country: None (occurrence: None)
  Receive Date: 20110512
  Receipt Date: 20110512
  Transmission Date: 20111010
  Serious: Yes (Hospitalization)
  Sender: FDA-Public Use
  Company Number: None

PATIENT
  Sex: Female
  Weight: 94 kg

DRUGS (2)
  1. CISPLATIN [Suspect]
     Dosage: 135 MG
     Dates: end: 20110419
  2. TAXOL [Suspect]
     Dosage: 351 MG
     Dates: end: 20110425

REACTIONS (3)
  - STAPHYLOCOCCUS TEST POSITIVE [None]
  - CELLULITIS [None]
  - CATHETER SITE DISCHARGE [None]
